FAERS Safety Report 21405942 (Version 1)
Quarter: 2022Q4

REPORT INFORMATION
  Report Type: Report from Study
  Country: AR (occurrence: AR)
  Receive Date: 20221004
  Receipt Date: 20221004
  Transmission Date: 20230113
  Serious: Yes (Death)
  Sender: FDA-Public Use
  Company Number: AR-NOVARTISPH-NVSC2022AR178099

PATIENT
  Age: 72 Year
  Sex: Female

DRUGS (4)
  1. MEKINIST [Suspect]
     Active Substance: TRAMETINIB DIMETHYL SULFOXIDE
     Indication: Metastatic malignant melanoma
     Dosage: 2 MG, QD
     Route: 048
     Dates: start: 20220610
  2. MEKINIST [Suspect]
     Active Substance: TRAMETINIB DIMETHYL SULFOXIDE
     Dosage: 2 MG, QD
     Route: 048
     Dates: start: 20220710
  3. TAFINLAR [Suspect]
     Active Substance: DABRAFENIB MESYLATE
     Indication: Metastatic malignant melanoma
     Dosage: 300 MG, QD
     Route: 048
     Dates: start: 20220610
  4. TAFINLAR [Suspect]
     Active Substance: DABRAFENIB MESYLATE
     Dosage: 300 MG, QD
     Route: 048
     Dates: start: 20220710

REACTIONS (6)
  - Death [Fatal]
  - Malaise [Unknown]
  - Depressed mood [Unknown]
  - Bone pain [Unknown]
  - Mobility decreased [Unknown]
  - Walking disability [Unknown]

NARRATIVE: CASE EVENT DATE: 20220907
